FAERS Safety Report 11464781 (Version 1)
Quarter: 2015Q3

REPORT INFORMATION
  Report Type: Spontaneous
  Country: MX (occurrence: MX)
  Receive Date: 20150906
  Receipt Date: 20150906
  Transmission Date: 20151125
  Serious: Yes (Other)
  Sender: FDA-Public Use
  Company Number: MX-AMGEN-MEXSP2014109897

PATIENT
  Age: 55 Year
  Sex: Female

DRUGS (1)
  1. ENBREL [Suspect]
     Active Substance: ETANERCEPT
     Indication: RHEUMATOID ARTHRITIS
     Dosage: 50 MG, CYCLIC, EVERY 1 MONTH AND HALF
     Route: 065
     Dates: start: 201409

REACTIONS (4)
  - Sjogren^s syndrome [Unknown]
  - Nervous system disorder [Unknown]
  - Asthenopia [Unknown]
  - Ocular hyperaemia [Unknown]
